FAERS Safety Report 23919614 (Version 1)
Quarter: 2024Q2

REPORT INFORMATION
  Report Type: Spontaneous
  Country: FR (occurrence: FR)
  Receive Date: 20240530
  Receipt Date: 20240530
  Transmission Date: 20240716
  Serious: Yes (Hospitalization)
  Sender: FDA-Public Use
  Company Number: FR-MYLANLABS-2024M1049012

PATIENT
  Age: 71 Year
  Sex: Male

DRUGS (15)
  1. VANCOMYCIN [Suspect]
     Active Substance: VANCOMYCIN
     Indication: Staphylococcal infection
     Dosage: UNK; SPACER
     Route: 065
  2. FOSFOMYCIN [Suspect]
     Active Substance: FOSFOMYCIN
     Indication: Staphylococcal infection
     Dosage: 2 GRAM
     Route: 065
  3. GENTAMICIN [Suspect]
     Active Substance: GENTAMICIN
     Indication: Staphylococcal infection
     Dosage: UNK; SPACER
     Route: 065
  4. COTRIMOXAZOLE [Suspect]
     Active Substance: SULFAMETHOXAZOLE\TRIMETHOPRIM
     Indication: Staphylococcal infection
     Dosage: UNK
     Route: 065
  5. RIFAMPIN [Suspect]
     Active Substance: RIFAMPIN
     Indication: Staphylococcal infection
     Dosage: UNK
     Route: 065
  6. COLISTIN [Concomitant]
     Active Substance: COLISTIN
     Indication: Enterobacter infection
     Dosage: UNK; 4 MUI/8?H
     Route: 065
  7. COLISTIN [Concomitant]
     Active Substance: COLISTIN
     Indication: Superinfection
  8. DAPTOMYCIN [Concomitant]
     Active Substance: DAPTOMYCIN
     Indication: Antibiotic therapy
     Dosage: UNK
     Route: 065
  9. METRONIDAZOLE [Concomitant]
     Active Substance: METRONIDAZOLE
     Indication: Antibiotic therapy
     Dosage: UNK
     Route: 065
  10. CEFEPIME [Concomitant]
     Active Substance: CEFEPIME HYDROCHLORIDE
     Indication: Antibiotic therapy
     Dosage: UNK
     Route: 065
  11. PIPERACILLIN AND TAZOBACTAM [Concomitant]
     Active Substance: PIPERACILLIN SODIUM\TAZOBACTAM SODIUM
     Indication: Antibiotic therapy
     Dosage: UNK
     Route: 065
  12. AVIBACTAM SODIUM\CEFTAZIDIME [Concomitant]
     Active Substance: AVIBACTAM SODIUM\CEFTAZIDIME
     Indication: Enterobacter infection
     Dosage: UNK
     Route: 065
  13. AVIBACTAM SODIUM\CEFTAZIDIME [Concomitant]
     Active Substance: AVIBACTAM SODIUM\CEFTAZIDIME
     Indication: Superinfection
  14. AZTREONAM [Concomitant]
     Active Substance: AZTREONAM
     Indication: Enterobacter infection
     Dosage: UNK
     Route: 065
  15. AZTREONAM [Concomitant]
     Active Substance: AZTREONAM
     Indication: Superinfection

REACTIONS (1)
  - Drug ineffective [Unknown]
